FAERS Safety Report 12961308 (Version 1)
Quarter: 2016Q4

REPORT INFORMATION
  Report Type: Spontaneous
  Country: CA (occurrence: CA)
  Receive Date: 20161121
  Receipt Date: 20161121
  Transmission Date: 20170207
  Serious: Yes (Hospitalization, Other)
  Sender: FDA-Public Use
  Company Number: CA-PFIZER INC-2016527041

PATIENT
  Age: 42 Year
  Sex: Female
  Weight: 63 kg

DRUGS (8)
  1. IRON [Concomitant]
     Active Substance: IRON
     Dosage: UNK
  2. PREDNISONE. [Concomitant]
     Active Substance: PREDNISONE
     Dosage: UNK
  3. ATIVAN [Concomitant]
     Active Substance: LORAZEPAM
  4. SEPTRA [Suspect]
     Active Substance: SULFAMETHOXAZOLE\TRIMETHOPRIM
     Indication: PROPHYLAXIS
     Dosage: UNK, 1X/DAY
     Dates: end: 20160715
  5. ARANESP [Suspect]
     Active Substance: DARBEPOETIN ALFA
     Dosage: 100 UG, UNK
  6. ARANESP [Suspect]
     Active Substance: DARBEPOETIN ALFA
     Dosage: 60 UG, UNK
     Dates: start: 201602
  7. LIDOCAINE. [Concomitant]
     Active Substance: LIDOCAINE
     Dosage: UNK
  8. COLCHICINE. [Suspect]
     Active Substance: COLCHICINE
     Indication: GOUT
     Dosage: 0.6 MG, 2X/DAY
     Dates: end: 20160715

REACTIONS (15)
  - Refractory cytopenia with unilineage dysplasia [Not Recovered/Not Resolved]
  - Bone marrow failure [Unknown]
  - Platelet count increased [Unknown]
  - Aplasia pure red cell [Unknown]
  - Hypophosphataemia [Unknown]
  - Lymphoproliferative disorder [Unknown]
  - Macrocytosis [Unknown]
  - Renal transplant [Unknown]
  - Amegakaryocytic thrombocytopenia [Unknown]
  - Macrophages increased [Unknown]
  - Anaemia [Unknown]
  - Transfusion [Unknown]
  - Haemodialysis [Unknown]
  - Pancytopenia [Unknown]
  - Natural killer cell count [Unknown]

NARRATIVE: CASE EVENT DATE: 2016
